FAERS Safety Report 18606909 (Version 2)
Quarter: 2021Q1

REPORT INFORMATION
  Report Type: Report from Study
  Country: US (occurrence: US)
  Receive Date: 20201211
  Receipt Date: 20210126
  Transmission Date: 20210419
  Serious: Yes (Other)
  Sender: FDA-Public Use
  Company Number: US-TEVA-2020-US-1858110

PATIENT
  Age: 49 Year
  Sex: Female

DRUGS (1)
  1. HYDROXYCHLOROQUINE [Suspect]
     Active Substance: HYDROXYCHLOROQUINE
     Indication: SJOGREN^S SYNDROME
     Dosage: 6.8 MG/KG DAILY; TOTAL DOSE: 1752G, RECEIVED FOR 12 YEARS
     Route: 065

REACTIONS (2)
  - Toxicity to various agents [Unknown]
  - Maculopathy [Unknown]
